FAERS Safety Report 14154226 (Version 1)
Quarter: 2017Q4

REPORT INFORMATION
  Report Type: Spontaneous
  Country: DE (occurrence: DE)
  Receive Date: 20171102
  Receipt Date: 20171102
  Transmission Date: 20180321
  Serious: Yes (Other)
  Sender: FDA-Public Use
  Company Number: DE-ASTRAZENECA-2017SF09642

PATIENT
  Sex: Female

DRUGS (2)
  1. OLAPARIB. [Suspect]
     Active Substance: OLAPARIB
     Route: 048
     Dates: start: 201704
  2. OLAPARIB. [Suspect]
     Active Substance: OLAPARIB
     Dosage: DOSE REDUCTION
     Route: 048

REACTIONS (1)
  - Carbohydrate antigen 125 increased [Unknown]
